FAERS Safety Report 7881287-X (Version None)
Quarter: 2011Q4

REPORT INFORMATION
  Report Type: 
  Country: None (occurrence: None)
  Receive Date: 20111101
  Receipt Date: 20110523
  Transmission Date: 20120403
  Serious: No
  Sender: FDA-Public Use
  Company Number: US-AMGEN-USASP2011026525

PATIENT
  Age: 57 Year
  Sex: Female

DRUGS (1)
  1. ENBREL [Suspect]
     Indication: PSORIASIS
     Dosage: 50 MG, 2 TIMES/WK
     Dates: start: 20110513

REACTIONS (5)
  - MIGRAINE [None]
  - SINUSITIS [None]
  - GENERALISED ERYTHEMA [None]
  - ADVERSE DRUG REACTION [None]
  - PRURITUS GENERALISED [None]
